FAERS Safety Report 18594109 (Version 1)
Quarter: 2020Q4

REPORT INFORMATION
  Report Type: Spontaneous
  Country: FR (occurrence: FR)
  Receive Date: 20201209
  Receipt Date: 20201209
  Transmission Date: 20210114
  Serious: Yes (Hospitalization, Other)
  Sender: FDA-Public Use
  Company Number: FR-AUROBINDO-AUR-APL-2020-059958

PATIENT
  Age: 44 Year
  Sex: Female
  Weight: 49 kg

DRUGS (8)
  1. MIDAZOLAM. [Suspect]
     Active Substance: MIDAZOLAM
     Indication: ANAESTHESIA
     Dosage: 2 MILLIGRAM, ONCE A DAY
     Route: 040
     Dates: start: 20201117, end: 20201117
  2. ACUPAN [Suspect]
     Active Substance: NEFOPAM HYDROCHLORIDE
     Indication: ANAESTHESIA
     Dosage: 20 MILLIGRAM, ONCE A DAY
     Route: 040
     Dates: start: 20201117, end: 20201117
  3. SUFENTANIL [Suspect]
     Active Substance: SUFENTANIL
     Indication: ANAESTHESIA
     Dosage: 20 MILLIGRAM, 1 TOTAL
     Route: 040
     Dates: start: 20201117, end: 20201117
  4. PROPOFOL. [Suspect]
     Active Substance: PROPOFOL
     Indication: ANAESTHESIA
     Dosage: 150 MILLIGRAM, 1 TOTAL
     Route: 040
     Dates: start: 20201117, end: 20201117
  5. TRAMADOL. [Suspect]
     Active Substance: TRAMADOL
     Indication: PAIN
     Dosage: 300 MILLIGRAM/2D (LP150)
     Route: 048
     Dates: end: 20201117
  6. EFFERALGAN CODEINE [Suspect]
     Active Substance: ACETAMINOPHEN\CODEINE PHOSPHATE
     Indication: PAIN
     Dosage: 4 GRAM/2D
     Route: 048
     Dates: end: 20201117
  7. ATRACURIUM [Suspect]
     Active Substance: ATRACURIUM
     Indication: ANAESTHESIA
     Dosage: 50 MILLIGRAM, 1 TOTAL
     Route: 040
     Dates: start: 20201117, end: 20201117
  8. KETAMINE [Suspect]
     Active Substance: KETAMINE
     Indication: ANAESTHESIA
     Dosage: 20 MILLIGRAM, ONCE A DAY
     Route: 040
     Dates: start: 20201117, end: 20201117

REACTIONS (1)
  - Anticholinergic syndrome [Recovered/Resolved]

NARRATIVE: CASE EVENT DATE: 20201117
